FAERS Safety Report 17954972 (Version 1)
Quarter: 2020Q2

REPORT INFORMATION
  Report Type: Spontaneous
  Country: US (occurrence: US)
  Receive Date: 20200629
  Receipt Date: 20200629
  Transmission Date: 20200714
  Serious: Yes (Hospitalization, Other)
  Sender: FDA-Public Use
  Company Number: US-009507513-2006USA009873

PATIENT
  Sex: Male

DRUGS (3)
  1. CARBOPLATIN. [Suspect]
     Active Substance: CARBOPLATIN
     Indication: HEAD AND NECK CANCER METASTATIC
     Dosage: UNK
     Dates: start: 20200327, end: 20200505
  2. FLUOROURACIL. [Suspect]
     Active Substance: FLUOROURACIL
     Indication: HEAD AND NECK CANCER METASTATIC
     Dosage: UNK
     Dates: start: 20200327, end: 20200505
  3. KEYTRUDA [Suspect]
     Active Substance: PEMBROLIZUMAB
     Indication: HEAD AND NECK CANCER METASTATIC
     Dosage: UNK
     Dates: start: 20200327, end: 20200505

REACTIONS (4)
  - Mucosal inflammation [Unknown]
  - Diarrhoea [Unknown]
  - Rocky mountain spotted fever [Unknown]
  - Colitis [Unknown]

NARRATIVE: CASE EVENT DATE: 2020
